FAERS Safety Report 7945510-5 (Version None)
Quarter: 2011Q4

REPORT INFORMATION
  Report Type: 
  Country: None (occurrence: None)
  Receive Date: 20111129
  Receipt Date: 20111117
  Transmission Date: 20120403
  Serious: Yes (Other)
  Sender: FDA-Public Use
  Company Number: US-SANOFI-AVENTIS-2011SA076195

PATIENT
  Age: 86 Year
  Sex: Female
  Weight: 56 kg

DRUGS (3)
  1. LIPITOR [Concomitant]
     Route: 065
     Dates: start: 20110301
  2. ASPIRIN [Concomitant]
     Route: 065
     Dates: start: 20110301
  3. PLAVIX [Suspect]
     Route: 065
     Dates: start: 20110301

REACTIONS (1)
  - WEIGHT DECREASED [None]
